FAERS Safety Report 5034922-8 (Version None)
Quarter: 2006Q2

REPORT INFORMATION
  Report Type: 
  Country: None (occurrence: None)
  Receive Date: 20060622
  Receipt Date: 20050310
  Transmission Date: 20061013
  Serious: Yes (Hospitalization)
  Sender: FDA-Public Use
  Company Number: 05-0034POFOLLOWUP 1

PATIENT
  Age: 10 Year
  Sex: Male
  Weight: 39 kg

DRUGS (2)
  1. PONTAL (MEFENAMIC ACID) SYRUP [Suspect]
     Indication: CONTUSION
     Dosage: 8 ML THREE TIMES A DAY, PO
     Route: 048
     Dates: start: 20040903, end: 20040904
  2. VOLTAREN [Suspect]
     Indication: CONTUSION
     Dosage: 12.5MG ONCE DAILY, RECTAL
     Route: 054
     Dates: start: 20040903, end: 20040904

REACTIONS (11)
  - ABDOMINAL DISCOMFORT [None]
  - CONVULSION [None]
  - HEADACHE [None]
  - HYPERTENSION [None]
  - MENTAL STATUS CHANGES [None]
  - NEPHRITIS INTERSTITIAL [None]
  - RENAL FAILURE ACUTE [None]
  - RENAL HYPERTENSION [None]
  - RESTLESSNESS [None]
  - REVERSIBLE POSTERIOR LEUKOENCEPHALOPATHY SYNDROME [None]
  - SWELLING [None]
